FAERS Safety Report 22202828 (Version 4)
Quarter: 2023Q4

REPORT INFORMATION
  Report Type: Spontaneous
  Country: US (occurrence: US)
  Receive Date: 20230412
  Receipt Date: 20231128
  Transmission Date: 20240110
  Serious: No
  Sender: FDA-Public Use
  Company Number: US-PFIZER INC-PV202300063755

PATIENT
  Age: 89 Year
  Sex: Female

DRUGS (4)
  1. IBRANCE [Suspect]
     Active Substance: PALBOCICLIB
     Dosage: 100 MG, 1X/DAY
     Route: 048
     Dates: start: 20220815
  2. IBRANCE [Suspect]
     Active Substance: PALBOCICLIB
     Dosage: 1 TAB ORAL DAILY X 3 WEEKS, THEN 1 WEEKS OFF
     Route: 048
     Dates: start: 20230217
  3. IBRANCE [Suspect]
     Active Substance: PALBOCICLIB
     Dosage: 75 MG, CYCLIC (DAILY X 2 WEEKS, THEN 2 WEEKS OFF) QUANTITY: 14 TAB
     Route: 048
     Dates: start: 20230522
  4. IBRANCE [Suspect]
     Active Substance: PALBOCICLIB
     Dosage: 1 TAB ORAL DAILY X 2 WEEKS, THEN 2 WEEKS OFF
     Route: 048
     Dates: start: 20231109

REACTIONS (2)
  - Full blood count abnormal [Unknown]
  - Off label use [Unknown]
